FAERS Safety Report 22518248 (Version 2)
Quarter: 2023Q2

REPORT INFORMATION
  Report Type: Report from Study
  Country: US (occurrence: US)
  Receive Date: 20230605
  Receipt Date: 20230615
  Transmission Date: 20230721
  Serious: Yes (Hospitalization, Other)
  Sender: FDA-Public Use
  Company Number: US-BoehringerIngelheim-2023-BI-227145

PATIENT
  Age: 65 Year
  Sex: Female
  Weight: 68.0 kg

DRUGS (6)
  1. OFEV [Suspect]
     Active Substance: NINTEDANIB
     Indication: Idiopathic pulmonary fibrosis
     Route: 048
     Dates: start: 20230321
  2. TYVASO [Suspect]
     Active Substance: TREPROSTINIL
  3. TYVASO [Suspect]
     Active Substance: TREPROSTINIL
     Indication: Pulmonary arterial hypertension
     Route: 055
  4. TYVASO [Suspect]
     Active Substance: TREPROSTINIL
     Route: 055
  5. TYVASO [Suspect]
     Active Substance: TREPROSTINIL
     Dates: start: 20230202
  6. IMODIUM [Suspect]
     Active Substance: LOPERAMIDE HYDROCHLORIDE
     Indication: Diarrhoea

REACTIONS (14)
  - Cough [Unknown]
  - Rectal haemorrhage [Unknown]
  - Diarrhoea haemorrhagic [Not Recovered/Not Resolved]
  - Brain injury [Unknown]
  - Dizziness [Unknown]
  - Anxiety [Unknown]
  - Colitis ulcerative [Recovering/Resolving]
  - Anal incontinence [Unknown]
  - Gastrointestinal disorder [Not Recovered/Not Resolved]
  - Haemorrhoids [Unknown]
  - Memory impairment [Unknown]
  - Rectal polyp [Unknown]
  - Therapy non-responder [Unknown]
  - Drug titration error [Unknown]

NARRATIVE: CASE EVENT DATE: 20230101
